FAERS Safety Report 9353877 (Version 2)
Quarter: 2013Q4

REPORT INFORMATION
  Report Type: Report from Study
  Country: US (occurrence: US)
  Receive Date: 20130618
  Receipt Date: 20131028
  Transmission Date: 20140711
  Serious: Yes (Other)
  Sender: FDA-Public Use
  Company Number: US-BAYER-2013-074646

PATIENT
  Age: 79 Year
  Sex: Male

DRUGS (3)
  1. XOFIGO [Suspect]
     Dosage: UNK
     Route: 042
     Dates: start: 201303, end: 201303
  2. XOFIGO [Suspect]
     Dosage: UNK
     Route: 042
     Dates: start: 201304, end: 201304
  3. XOFIGO [Suspect]
     Dosage: UNK
     Route: 042
     Dates: start: 201305, end: 201305

REACTIONS (1)
  - Prostatic specific antigen increased [None]
